FAERS Safety Report 5407100-8 (Version None)
Quarter: 2007Q3

REPORT INFORMATION
  Report Type: 
  Country: None (occurrence: None)
  Receive Date: 20070802
  Receipt Date: 20070523
  Transmission Date: 20080115
  Serious: Yes (Death)
  Sender: FDA-Public Use
  Company Number: 510#6#2007-00013

PATIENT
  Age: 70 Year
  Sex: Male

DRUGS (1)
  1. NEUPRO-2MG/24H (ROTIGOTINE) [Suspect]
     Indication: PARKINSON'S DISEASE
     Dosage: 2 MG/24H (2 MG/24H 1 IN 1 DAY(S)) TRANSDERMAL
     Route: 062
     Dates: start: 20070411, end: 20070516

REACTIONS (1)
  - GENERAL PHYSICAL HEALTH DETERIORATION [None]
